FAERS Safety Report 8408258-9 (Version None)
Quarter: 2012Q2

REPORT INFORMATION
  Report Type: 
  Country: None (occurrence: None)
  Receive Date: 20120604
  Receipt Date: 20120531
  Transmission Date: 20120825
  Serious: Yes (Death)
  Sender: FDA-Public Use
  Company Number: US-ABBOTT-12P-163-0926833-00

PATIENT
  Sex: Female
  Weight: 59.02 kg

DRUGS (8)
  1. LEVOTHYROXINE SODIUM [Suspect]
     Indication: HYPOTHYROIDISM
     Dosage: DAILY FOR YEARS
  2. RITUXAN [Suspect]
     Indication: RHEUMATOID ARTHRITIS
     Route: 042
     Dates: end: 20110901
  3. FOSAMAX [Suspect]
     Indication: OSTEOPOROSIS
     Dosage: WEEKLY FOR YEARS
  4. ENBREL [Suspect]
     Indication: RHEUMATOID ARTHRITIS
     Dates: start: 20020101, end: 20110101
  5. IBUPROFEN (ADVIL) [Suspect]
     Indication: RHEUMATOID ARTHRITIS
     Dosage: DAILY FOR YEARS
  6. METHOTREXATE [Suspect]
     Indication: RHEUMATOID ARTHRITIS
     Dosage: 7.5MG WEEKLY
     Route: 048
     Dates: end: 20120403
  7. HUMIRA [Suspect]
     Indication: RHEUMATOID ARTHRITIS
     Route: 058
     Dates: start: 20120301, end: 20120301
  8. FOLIC ACID [Suspect]
     Indication: RHEUMATOID ARTHRITIS
     Dosage: DAILY FOR YEARS

REACTIONS (3)
  - HEPATITIS B [None]
  - HEPATIC FAILURE [None]
  - INFLUENZA LIKE ILLNESS [None]
